FAERS Safety Report 16882149 (Version 4)
Quarter: 2024Q2

REPORT INFORMATION
  Report Type: Spontaneous
  Country: JP (occurrence: JP)
  Receive Date: 20191003
  Receipt Date: 20240416
  Transmission Date: 20240716
  Serious: Yes (Hospitalization, Other)
  Sender: FDA-Public Use
  Company Number: JP-MLMSERVICE-20190916-1953695-1

PATIENT
  Age: 18 Year
  Sex: Male
  Weight: 61 kg

DRUGS (8)
  1. CISPLATIN [Suspect]
     Active Substance: CISPLATIN
     Indication: Osteosarcoma
     Dosage: 480 MG/M2, SINGLE (CUMULATIVE DOSE)
  2. CISPLATIN [Suspect]
     Active Substance: CISPLATIN
     Indication: Chemotherapy
  3. METHOTREXATE SODIUM [Suspect]
     Active Substance: METHOTREXATE SODIUM
     Indication: Osteosarcoma
     Dosage: UNK (96 G/M^2, CUMULATIVE DOSE)
  4. METHOTREXATE SODIUM [Suspect]
     Active Substance: METHOTREXATE SODIUM
     Indication: Chemotherapy
  5. DOXORUBICIN HYDROCHLORIDE [Suspect]
     Active Substance: DOXORUBICIN HYDROCHLORIDE
     Indication: Osteosarcoma
     Dosage: 120 MG/M2, SINGLE (CUMULATIVE DOSE)
  6. DOXORUBICIN HYDROCHLORIDE [Suspect]
     Active Substance: DOXORUBICIN HYDROCHLORIDE
     Indication: Chemotherapy
  7. IFOSFAMIDE [Suspect]
     Active Substance: IFOSFAMIDE
     Indication: Osteosarcoma
     Dosage: UNK (81 G/M^2, CUMULATIVE DOSE)
  8. IFOSFAMIDE [Suspect]
     Active Substance: IFOSFAMIDE
     Indication: Chemotherapy

REACTIONS (8)
  - Renal tubular injury [Unknown]
  - Nephropathy toxic [Unknown]
  - Aminoaciduria [Unknown]
  - Nephropathy [Unknown]
  - Glomerulosclerosis [Unknown]
  - Fanconi syndrome [Unknown]
  - Thrombotic microangiopathy [Unknown]
  - Renal impairment [Unknown]
